FAERS Safety Report 15485327 (Version 1)
Quarter: 2018Q4

REPORT INFORMATION
  Report Type: Spontaneous
  Country: US (occurrence: US)
  Receive Date: 20181010
  Receipt Date: 20181010
  Transmission Date: 20190205
  Serious: Yes (Other)
  Sender: FDA-Public Use
  Company Number: US-ROCHE-2172448

PATIENT
  Age: 64 Year
  Sex: Male

DRUGS (3)
  1. ESBRIET [Suspect]
     Active Substance: PIRFENIDONE
     Indication: IDIOPATHIC PULMONARY FIBROSIS
     Dosage: ONGOING: NO
     Route: 048
     Dates: start: 20180415, end: 20180818
  2. ESBRIET [Suspect]
     Active Substance: PIRFENIDONE
     Dosage: 1 TAB DAILY FOR 2 WEEKS
     Route: 048
  3. ESBRIET [Suspect]
     Active Substance: PIRFENIDONE
     Dosage: 1 TAB TWICE DAILY
     Route: 048

REACTIONS (2)
  - Rash [Recovering/Resolving]
  - Sunburn [Recovering/Resolving]

NARRATIVE: CASE EVENT DATE: 20180630
